FAERS Safety Report 20387913 (Version 1)
Quarter: 2022Q1

REPORT INFORMATION
  Report Type: Spontaneous
  Country: GB (occurrence: GB)
  Receive Date: 20220128
  Receipt Date: 20220128
  Transmission Date: 20220423
  Serious: Yes (Other)
  Sender: FDA-Public Use
  Company Number: GB-SUN PHARMACEUTICAL INDUSTRIES LTD-2022RR-325012

PATIENT
  Age: 47 Year
  Sex: Female

DRUGS (4)
  1. AMISULPRIDE [Suspect]
     Active Substance: AMISULPRIDE
     Indication: Mood swings
     Dosage: 400 MILLIGRAM, BID
     Route: 065
  2. ARIPIPRAZOLE [Suspect]
     Active Substance: ARIPIPRAZOLE
     Indication: Mood swings
     Dosage: 5 MILLIGRAM, DAILY
     Route: 065
  3. CARBAMAZEPINE [Suspect]
     Active Substance: CARBAMAZEPINE
     Indication: Mood swings
     Dosage: 400 MILLIGRAM, BID
     Route: 065
  4. LITHIUM [Suspect]
     Active Substance: LITHIUM
     Indication: Product used for unknown indication
     Dosage: UNK
     Route: 065

REACTIONS (3)
  - Drug resistance [Unknown]
  - Drug intolerance [Unknown]
  - Suicide attempt [Unknown]
